FAERS Safety Report 5259952-2 (Version None)
Quarter: 2007Q1

REPORT INFORMATION
  Report Type: 
  Country: None (occurrence: None)
  Receive Date: 20070309
  Receipt Date: 20070302
  Transmission Date: 20070707
  Serious: Yes (Other)
  Sender: FDA-Public Use
  Company Number: IN-GLAXOSMITHKLINE-B0460804A

PATIENT
  Age: 61 Year
  Sex: Male

DRUGS (1)
  1. ROSIGLITAZONE [Suspect]
     Indication: DIABETES MELLITUS
     Dosage: 4MG PER DAY
     Route: 048
     Dates: start: 20070202, end: 20070222

REACTIONS (6)
  - ANOREXIA [None]
  - HEPATIC ENZYME INCREASED [None]
  - HEPATITIS INFECTIOUS [None]
  - JAUNDICE CHOLESTATIC [None]
  - NAUSEA [None]
  - PANCREATIC CARCINOMA [None]
